FAERS Safety Report 6326867-8 (Version None)
Quarter: 2009Q3

REPORT INFORMATION
  Report Type: 
  Country: None (occurrence: None)
  Receive Date: 20090825
  Receipt Date: 20090814
  Transmission Date: 20100115
  Serious: Yes (Hospitalization, Other)
  Sender: FDA-Public Use
  Company Number: AT-BAXTER-2009BH012435

PATIENT
  Age: 68 Year
  Sex: Male
  Weight: 90 kg

DRUGS (8)
  1. GAMMAGARD LIQUID [Suspect]
     Indication: NEUROPATHY PERIPHERAL
     Route: 042
     Dates: start: 20090613, end: 20090617
  2. ALNA [Concomitant]
     Indication: BLADDER DISCOMFORT
     Route: 048
  3. OMEPRAZOLE [Concomitant]
     Indication: GASTRITIS
     Route: 048
  4. NEURONTIN [Concomitant]
     Indication: NEURALGIA
  5. AMITRIPTYLINE [Concomitant]
     Indication: NEURALGIA
  6. HYDAL [Concomitant]
     Indication: NEURALGIA
     Route: 048
  7. AMARYL [Concomitant]
     Indication: TYPE 2 DIABETES MELLITUS
     Route: 048
  8. FUROSPIROBENE [Concomitant]
     Indication: HYPERTENSION
     Route: 048

REACTIONS (1)
  - DEEP VEIN THROMBOSIS [None]
